FAERS Safety Report 21649104 (Version 1)
Quarter: 2022Q4

REPORT INFORMATION
  Report Type: Spontaneous
  Country: None (occurrence: US)
  Receive Date: 20221128
  Receipt Date: 20221128
  Transmission Date: 20230113
  Serious: No
  Sender: FDA-Public Use
  Company Number: US-Ajanta Pharma USA Inc.-2135284

PATIENT
  Sex: Male
  Weight: 99.091 kg

DRUGS (2)
  1. CLONIDINE [Suspect]
     Active Substance: CLONIDINE
     Dates: start: 20220928, end: 20221023
  2. MELATONIN [Concomitant]
     Active Substance: MELATONIN

REACTIONS (1)
  - Oral mucosal blistering [Recovered/Resolved]

NARRATIVE: CASE EVENT DATE: 20220101
